FAERS Safety Report 18105571 (Version 2)
Quarter: 2020Q3

REPORT INFORMATION
  Report Type: Report from Study
  Country: DE (occurrence: DE)
  Receive Date: 20200803
  Receipt Date: 20200821
  Transmission Date: 20201103
  Serious: Yes (Life-Threatening, Hospitalization, Other)
  Sender: FDA-Public Use
  Company Number: DE-AMGEN-DEUNI2020123783

PATIENT
  Age: 61 Year
  Sex: Male
  Weight: 77 kg

DRUGS (24)
  1. FLUOROURACIL. [Suspect]
     Active Substance: FLUOROURACIL
     Dosage: 4704 MILLIGRAM
     Route: 042
     Dates: start: 20190417
  2. FLUOROURACIL. [Suspect]
     Active Substance: FLUOROURACIL
     Dosage: 5880 MILLIGRAM
     Route: 042
     Dates: start: 20190515
  3. AMLODIPINE [Concomitant]
     Active Substance: AMLODIPINE BESYLATE
     Indication: ESSENTIAL HYPERTENSION
     Dosage: 5 MILLIGRAM DAILY
     Route: 048
  4. DEXAMETHASON [DEXAMETHASONE] [Concomitant]
     Active Substance: DEXAMETHASONE
     Indication: PROPHYLAXIS
     Dosage: 8 MILLIGRAM PER CYCLE
     Route: 048
     Dates: start: 20190417
  5. METROCREME [Concomitant]
     Indication: PROPHYLAXIS
     Dosage: 1 GRAM, BID
     Route: 062
     Dates: start: 20190430
  6. PANITUMUMAB [Suspect]
     Active Substance: PANITUMUMAB
     Indication: COLORECTAL CANCER METASTATIC
     Dosage: 462 MILLIGRAM
     Route: 042
     Dates: start: 20190417
  7. FOLINIC ACID [Suspect]
     Active Substance: LEUCOVORIN
     Dosage: 756 MILLIGRAM
     Route: 065
     Dates: start: 20190807
  8. LOPERAMID [Concomitant]
     Active Substance: LOPERAMIDE
     Indication: PROPHYLAXIS
     Dosage: 2 MILLIGRAM, AS NECESSARY
     Route: 048
     Dates: start: 20190417
  9. FLUOROURACIL. [Suspect]
     Active Substance: FLUOROURACIL
     Dosage: 756 MILLIGRAM
     Route: 040
     Dates: start: 20190807
  10. AKYNZEO [Concomitant]
     Active Substance: NETUPITANT\PALONOSETRON HYDROCHLORIDE
     Indication: PROPHYLAXIS
     Dosage: 300 MILLIGRAM PER CYCLE
     Route: 048
     Dates: start: 20200421
  11. PANITUMUMAB [Suspect]
     Active Substance: PANITUMUMAB
     Dosage: 420 MILLIGRAM
     Route: 042
     Dates: start: 20190807
  12. IRINOTECAN [Suspect]
     Active Substance: IRINOTECAN
     Dosage: 272 MILLIGRAM
     Route: 065
     Dates: start: 20200407
  13. ATROPIN [ATROPINE] [Concomitant]
     Indication: PROPHYLAXIS
     Dosage: 0.25 MILLIGRAM PER CYCLE
     Route: 058
     Dates: start: 20190417
  14. ONDANSETRON [Concomitant]
     Active Substance: ONDANSETRON
     Indication: PROPHYLAXIS
     Dosage: 8 MILLIGRAM PER CYCLE
     Route: 048
     Dates: start: 20190417, end: 20200407
  15. FLUOROURACIL. [Suspect]
     Active Substance: FLUOROURACIL
     Dosage: 4536 MILLIGRAM
     Route: 042
     Dates: start: 20190918
  16. FLUOROURACIL. [Suspect]
     Active Substance: FLUOROURACIL
     Dosage: 378 MILLIGRAM
     Route: 040
     Dates: start: 20200629
  17. IRINOTECAN [Suspect]
     Active Substance: IRINOTECAN
     Indication: COLORECTAL CANCER METASTATIC
     Dosage: 353 MILLIGRAM
     Route: 065
     Dates: start: 20190417
  18. MINOCYCLINE [Concomitant]
     Active Substance: MINOCYCLINE HYDROCHLORIDE
     Indication: PROPHYLAXIS
     Dosage: 100 MILLIGRAM, DAILY
     Route: 048
     Dates: start: 20190417
  19. PANITUMUMAB [Suspect]
     Active Substance: PANITUMUMAB
     Dosage: 210 MILLIGRAM
     Route: 042
     Dates: start: 20200505
  20. FLUOROURACIL. [Suspect]
     Active Substance: FLUOROURACIL
     Indication: COLORECTAL CANCER METASTATIC
     Dosage: 784 MILLIGRAM
     Route: 040
     Dates: start: 20190417
  21. FLUOROURACIL. [Suspect]
     Active Substance: FLUOROURACIL
     Dosage: 5292 MILLIGRAM
     Route: 042
     Dates: start: 20190430
  22. FLUOROURACIL. [Suspect]
     Active Substance: FLUOROURACIL
     Dosage: 5670 MILLIGRAM
     Route: 042
     Dates: start: 20190807
  23. IRINOTECAN [Suspect]
     Active Substance: IRINOTECAN
     Dosage: 340 MILLIGRAM
     Route: 065
     Dates: start: 20190807
  24. FOLINIC ACID [Suspect]
     Active Substance: LEUCOVORIN
     Indication: COLORECTAL CANCER METASTATIC
     Dosage: 784 MILLIGRAM
     Route: 065
     Dates: start: 20190417

REACTIONS (1)
  - Intestinal obstruction [Recovered/Resolved]

NARRATIVE: CASE EVENT DATE: 20200726
